FAERS Safety Report 10934018 (Version 2)
Quarter: 2015Q1

REPORT INFORMATION
  Report Type: Spontaneous
  Country: US (occurrence: US)
  Receive Date: 20150320
  Receipt Date: 20150320
  Transmission Date: 20150721
  Serious: Yes (Hospitalization, Other)
  Sender: FDA-Public Use
  Company Number: US-009507513-1109USA01915

PATIENT
  Sex: Female
  Weight: 69.39 kg

DRUGS (7)
  1. FOSAMAX [Suspect]
     Active Substance: ALENDRONATE SODIUM
     Indication: OSTEOPENIA
     Dosage: 70 MG, WEEKLY
     Route: 048
     Dates: start: 20020128, end: 20070615
  2. FOSAMAX [Suspect]
     Active Substance: ALENDRONATE SODIUM
     Indication: OSTEOPOROSIS POSTMENOPAUSAL
     Dosage: 10 MG, AM
     Route: 048
     Dates: start: 20000926
  3. ALENDRONATE SODIUM. [Suspect]
     Active Substance: ALENDRONATE SODIUM
     Indication: OSTEOPENIA
     Dosage: 70 MG, WEEKLY
     Route: 048
     Dates: start: 20080519, end: 20100111
  4. ALENDRONATE SODIUM. [Suspect]
     Active Substance: ALENDRONATE SODIUM
     Indication: OSTEOPOROSIS
  5. ACTONEL [Suspect]
     Active Substance: RISEDRONATE SODIUM
     Indication: OSTEOPOROSIS
  6. RISEDRONATE SODIUM. [Suspect]
     Active Substance: RISEDRONATE SODIUM
     Dates: start: 2003, end: 2010
  7. ACTONEL [Suspect]
     Active Substance: RISEDRONATE SODIUM
     Indication: OSTEOPENIA
     Dosage: 35 MG, UNK
     Route: 048
     Dates: start: 20070615, end: 20080808

REACTIONS (22)
  - Hip arthroplasty [Unknown]
  - Aortic disorder [Unknown]
  - Facet joint syndrome [Unknown]
  - Intervertebral disc degeneration [Unknown]
  - Lumbar spinal stenosis [Unknown]
  - Femur fracture [Recovered/Resolved]
  - Spinal compression fracture [Unknown]
  - Vertebral foraminal stenosis [Unknown]
  - Spinal osteoarthritis [Unknown]
  - Scoliosis [Unknown]
  - Renal cyst [Unknown]
  - Spinal osteoarthritis [Unknown]
  - Bursitis [Unknown]
  - Pain in extremity [Unknown]
  - Arthralgia [Unknown]
  - Hyperlipidaemia [Unknown]
  - Hepatic cyst [Unknown]
  - Femur fracture [Unknown]
  - Aortic arteriosclerosis [Unknown]
  - Diverticulum intestinal [Unknown]
  - Abdominal hernia [Unknown]
  - Arthralgia [Unknown]

NARRATIVE: CASE EVENT DATE: 20001117
